FAERS Safety Report 14702069 (Version 1)
Quarter: 2018Q1

REPORT INFORMATION
  Report Type: Spontaneous
  Country: US (occurrence: US)
  Receive Date: 20180331
  Receipt Date: 20180331
  Transmission Date: 20180509
  Serious: No
  Sender: FDA-Public Use
  Company Number: US-MYLANLABS-2018M1015992

PATIENT
  Sex: Female
  Weight: 53.52 kg

DRUGS (2)
  1. PROCTOFOAM HC [Suspect]
     Active Substance: HYDROCORTISONE ACETATE\PRAMOXINE HYDROCHLORIDE
     Indication: LICHEN PLANUS
     Dosage: 1 APPLICATION THRICE A DAY WEEK
     Route: 067
     Dates: start: 2017
  2. HYDROXYCHLOROQUINE [Concomitant]
     Active Substance: HYDROXYCHLOROQUINE
     Indication: LICHEN PLANUS
     Dosage: UNK

REACTIONS (6)
  - Device leakage [Unknown]
  - Incorrect route of drug administration [Unknown]
  - Therapeutic response unexpected [Unknown]
  - Incorrect dose administered by device [Unknown]
  - No adverse event [Unknown]
  - Off label use [Unknown]

NARRATIVE: CASE EVENT DATE: 2017
